FAERS Safety Report 5647948-8 (Version None)
Quarter: 2008Q1

REPORT INFORMATION
  Report Type: 
  Country: None (occurrence: None)
  Receive Date: 20080229
  Receipt Date: 20080225
  Transmission Date: 20080703
  Serious: Yes (Hospitalization)
  Sender: FDA-Public Use
  Company Number: 2008SP004053

PATIENT
  Age: 62 Year
  Sex: Female
  Weight: 50 kg

DRUGS (2)
  1. TEMODAR [Suspect]
     Indication: GLIOBLASTOMA MULTIFORME
     Dosage: 75 MG/M2;QD;PO
     Route: 048
     Dates: start: 20080107, end: 20080215
  2. DEXAMETHASONE TAB [Concomitant]

REACTIONS (4)
  - ANOREXIA [None]
  - DEHYDRATION [None]
  - NAUSEA [None]
  - VOMITING [None]
